FAERS Safety Report 7387151-7 (Version None)
Quarter: 2011Q1

REPORT INFORMATION
  Report Type: 
  Country: None (occurrence: None)
  Receive Date: 20110331
  Receipt Date: 20110325
  Transmission Date: 20110831
  Serious: Yes (Other)
  Sender: FDA-Public Use
  Company Number: A0919893A

PATIENT
  Sex: Male

DRUGS (1)
  1. FLONASE [Suspect]
     Indication: SINUSITIS
     Dosage: 4SPR TWICE PER DAY
     Route: 045
     Dates: end: 20101001

REACTIONS (4)
  - BLINDNESS [None]
  - MULTIPLE INJURIES [None]
  - SCAR [None]
  - CHORIORETINOPATHY [None]
